FAERS Safety Report 4899024-X (Version None)
Quarter: 2006Q1

REPORT INFORMATION
  Report Type: 
  Country: None (occurrence: None)
  Receive Date: 20060202
  Receipt Date: 20050125
  Transmission Date: 20060701
  Serious: Yes (Hospitalization, Other)
  Sender: FDA-Public Use
  Company Number: US-MERCK-0501USA03954

PATIENT
  Age: 70 Year
  Sex: Male
  Weight: 84 kg

DRUGS (3)
  1. VIOXX [Suspect]
     Indication: ARTHRALGIA
     Route: 048
     Dates: start: 20000128, end: 20030124
  2. ASPIRIN [Concomitant]
     Route: 065
  3. ALEVE [Concomitant]
     Route: 065

REACTIONS (14)
  - CHEST PAIN [None]
  - COMA [None]
  - CORONARY ARTERY DISEASE [None]
  - DIABETES MELLITUS [None]
  - GASTROOESOPHAGEAL REFLUX DISEASE [None]
  - HEADACHE [None]
  - HEART INJURY [None]
  - HIATUS HERNIA [None]
  - HYPERTENSION [None]
  - JOINT INJURY [None]
  - MYOCARDIAL INFARCTION [None]
  - NECK INJURY [None]
  - NIGHT SWEATS [None]
  - OSTEOARTHRITIS [None]
